FAERS Safety Report 10771559 (Version 1)
Quarter: 2015Q1

REPORT INFORMATION
  Report Type: Spontaneous
  Country: BR (occurrence: BR)
  Receive Date: 20150206
  Receipt Date: 20150206
  Transmission Date: 20150721
  Serious: Yes (Other)
  Sender: FDA-Public Use
  Company Number: BR-009507513-1502BRA002032

PATIENT
  Sex: Female
  Weight: 69 kg

DRUGS (1)
  1. MERCILON [Suspect]
     Active Substance: DESOGESTREL\ETHINYL ESTRADIOL
     Indication: CONTRACEPTION
     Dosage: 1 TABLET DAILY FOR 3 WEEKS OF USE AND 1 WEEK OF PAUSE
     Route: 048
     Dates: start: 1995, end: 2001

REACTIONS (2)
  - Abortion [Unknown]
  - Maternal exposure before pregnancy [Recovered/Resolved]
